FAERS Safety Report 20456832 (Version 1)
Quarter: 2022Q1

REPORT INFORMATION
  Report Type: Spontaneous
  Country: US (occurrence: US)
  Receive Date: 20220210
  Receipt Date: 20220210
  Transmission Date: 20220423
  Serious: No
  Sender: FDA-Public Use
  Company Number: US-PERRIGO-21US001498

PATIENT
  Age: 60 Year
  Sex: Female
  Weight: 70.295 kg

DRUGS (8)
  1. CETIRIZINE HYDROCHLORIDE [Suspect]
     Active Substance: CETIRIZINE HYDROCHLORIDE
     Indication: Dust allergy
     Dosage: 10 MG, QD
     Route: 048
     Dates: start: 202010, end: 202010
  2. CETIRIZINE HYDROCHLORIDE [Suspect]
     Active Substance: CETIRIZINE HYDROCHLORIDE
     Indication: Allergy to animal
  3. ESTROGENS [Concomitant]
     Active Substance: ESTROGENS
     Indication: Hormone replacement therapy
     Dosage: UNKNOWN, UNKNOWN
     Route: 065
     Dates: start: 2001
  4. NORTRIPTYLINE [Concomitant]
     Active Substance: NORTRIPTYLINE
     Indication: Abdominal pain
     Dosage: UNKNOWN, UNKNOWN
     Route: 065
     Dates: start: 202006
  5. FISH OIL [Concomitant]
     Active Substance: FISH OIL
     Indication: Supplementation therapy
     Dosage: UNKNOWN, UNKNOWN
     Route: 065
  6. CALCIUM [Concomitant]
     Active Substance: CALCIUM
     Indication: Supplementation therapy
     Dosage: UNKNOWN, UNKNOWN
     Route: 065
  7. VITAMIN D                          /00107901/ [Concomitant]
     Indication: Supplementation therapy
     Dosage: UNKNOWN, UNKNOWN
     Route: 065
  8. VITAMIN C                          /00008001/ [Concomitant]
     Indication: Supplementation therapy
     Dosage: UNKNOWN, UNKNOWN
     Route: 065

REACTIONS (1)
  - Drug ineffective [Unknown]

NARRATIVE: CASE EVENT DATE: 20201001
